FAERS Safety Report 25203305 (Version 1)
Quarter: 2025Q2

REPORT INFORMATION
  Report Type: Spontaneous
  Country: JP (occurrence: JP)
  Receive Date: 20250416
  Receipt Date: 20250416
  Transmission Date: 20250716
  Serious: Yes (Hospitalization)
  Sender: SYMOGEN
  Company Number: JP-PARTNER THERAPEUTICS-2025PTX00039

PATIENT
  Age: 21 Year
  Sex: Female

DRUGS (14)
  1. SARGRAMOSTIM [Suspect]
     Active Substance: SARGRAMOSTIM
     Indication: Alveolar proteinosis
     Dosage: 250 ?G, 1X/DAY
     Dates: start: 20221015, end: 20221122
  2. SARGRAMOSTIM [Suspect]
     Active Substance: SARGRAMOSTIM
     Dosage: 250 ?G, 1X/DAY
     Dates: start: 20230213, end: 20230215
  3. SARGRAMOSTIM [Suspect]
     Active Substance: SARGRAMOSTIM
     Dosage: 500 ?G, 1X/DAY
     Dates: start: 20230216, end: 20230319
  4. SARGRAMOSTIM [Suspect]
     Active Substance: SARGRAMOSTIM
     Dosage: 500 ?G, 1X/DAY
     Dates: start: 20230406, end: 20230423
  5. LIPOVAS [SIMVASTATIN] [Concomitant]
     Route: 065
  6. CARBOCYSTEINE [Concomitant]
     Active Substance: CARBOCYSTEINE
     Route: 065
  7. AMBROXOL HYDROCHLORIDE [Concomitant]
     Active Substance: AMBROXOL HYDROCHLORIDE
     Route: 065
  8. CALONAL [Concomitant]
     Active Substance: ACETAMINOPHEN
     Route: 065
  9. NADIFLOXACIN [Concomitant]
     Active Substance: NADIFLOXACIN
     Route: 065
  10. HYALURONATE SODIUM [Concomitant]
     Active Substance: HYALURONATE SODIUM
     Route: 047
  11. AMBROXOL HYDROCHLORIDE [Concomitant]
     Active Substance: AMBROXOL HYDROCHLORIDE
     Route: 065
  12. ERYTHROCIN [ERYTHROMYCIN STEARATE] [Concomitant]
     Route: 065
  13. CLARITHROMYCIN [Concomitant]
     Active Substance: CLARITHROMYCIN
     Route: 065
  14. EBUTOL [Concomitant]
     Active Substance: ETHAMBUTOL HYDROCHLORIDE
     Route: 065

REACTIONS (3)
  - Alveolar proteinosis [None]
  - Alveolar proteinosis [None]
  - Alveolar proteinosis [None]

NARRATIVE: CASE EVENT DATE: 20221111
